FAERS Safety Report 7570298-X (Version None)
Quarter: 2011Q2

REPORT INFORMATION
  Report Type: 
  Country: None (occurrence: None)
  Receive Date: 20110624
  Receipt Date: 20110617
  Transmission Date: 20111010
  Serious: Yes (Hospitalization)
  Sender: FDA-Public Use
  Company Number: US-B.I. PHARMACEUTICALS,INC./RIDGEFIELD-2011-BP-15790BP

PATIENT
  Sex: Female

DRUGS (1)
  1. PRADAXA [Suspect]
     Indication: ATRIAL FIBRILLATION
     Dosage: 300 MG
     Route: 048
     Dates: start: 20110527, end: 20110528

REACTIONS (5)
  - ASTHENIA [None]
  - HEART RATE INCREASED [None]
  - DIARRHOEA [None]
  - BLOOD PRESSURE DECREASED [None]
  - DEHYDRATION [None]
